FAERS Safety Report 15063972 (Version 1)
Quarter: 2018Q2

REPORT INFORMATION
  Report Type: Report from Study
  Country: US (occurrence: US)
  Receive Date: 20180625
  Receipt Date: 20180625
  Transmission Date: 20180711
  Serious: Yes (Other)
  Sender: FDA-Public Use
  Company Number: US-AMGEN-USASL2016050723

PATIENT
  Age: 57 Year
  Sex: Female
  Weight: 80.91 kg

DRUGS (1)
  1. REPATHA [Suspect]
     Active Substance: EVOLOCUMAB
     Indication: HYPERLIPIDAEMIA
     Dosage: 140 MG, QWK
     Route: 030
     Dates: start: 20151207, end: 20160427

REACTIONS (7)
  - Mobility decreased [Not Recovered/Not Resolved]
  - Incorrect route of drug administration [Unknown]
  - Nausea [Recovered/Resolved]
  - Off label use [Unknown]
  - Asthenia [Not Recovered/Not Resolved]
  - Malaise [Not Recovered/Not Resolved]
  - Fatigue [Recovered/Resolved]

NARRATIVE: CASE EVENT DATE: 20160427
